FAERS Safety Report 13704082 (Version 2)
Quarter: 2017Q3

REPORT INFORMATION
  Report Type: Spontaneous
  Country: IL (occurrence: IL)
  Receive Date: 20170630
  Receipt Date: 20170707
  Transmission Date: 20171127
  Serious: Yes (Other)
  Sender: FDA-Public Use
  Company Number: IL-UCBSA-2017023077

PATIENT
  Age: 2 Month
  Sex: Male
  Weight: 5.5 kg

DRUGS (7)
  1. VIMPAT [Suspect]
     Active Substance: LACOSAMIDE
     Indication: EPILEPTIC ENCEPHALOPATHY
     Dosage: 15 MG, 2X/DAY (BID)
     Route: 048
     Dates: start: 20170613, end: 20170616
  2. VIMPAT [Suspect]
     Active Substance: LACOSAMIDE
     Indication: OFF LABEL USE
  3. TOPAMAX [Concomitant]
     Active Substance: TOPIRAMATE
     Indication: EPILEPSY
     Dosage: 15 MG, 2X/DAY (BID)
     Route: 048
  4. VIMPAT [Suspect]
     Active Substance: LACOSAMIDE
     Indication: EPILEPTIC ENCEPHALOPATHY
     Dosage: 40 MG LOADING DOSE
     Route: 042
     Dates: start: 20170612, end: 20170612
  5. SABRIL [Concomitant]
     Active Substance: VIGABATRIN
     Indication: PRODUCT USED FOR UNKNOWN INDICATION
     Dosage: 560 MG, 2X/DAY (BID)
     Route: 048
  6. SEPTRA [Concomitant]
     Active Substance: SULFAMETHOXAZOLE\TRIMETHOPRIM
     Indication: PRODUCT USED FOR UNKNOWN INDICATION
     Dosage: 125 MG, 2X/DAY (BID)
     Route: 048
  7. VIMPAT [Suspect]
     Active Substance: LACOSAMIDE
     Indication: OFF LABEL USE

REACTIONS (2)
  - Off label use [Unknown]
  - Epileptic encephalopathy [Unknown]

NARRATIVE: CASE EVENT DATE: 201706
